FAERS Safety Report 15625097 (Version 2)
Quarter: 2018Q4

REPORT INFORMATION
  Report Type: Report from Study
  Country: US (occurrence: US)
  Receive Date: 20181116
  Receipt Date: 20181129
  Transmission Date: 20190205
  Serious: Yes (Hospitalization, Other)
  Sender: FDA-Public Use
  Company Number: US-GILEAD-2018-0348616

PATIENT
  Age: 38 Year
  Sex: Female
  Weight: 68 kg

DRUGS (10)
  1. OXYCODONE [Concomitant]
     Active Substance: OXYCODONE
  2. AMBRISENTAN [Suspect]
     Active Substance: AMBRISENTAN
     Dosage: 10 MG, QD
     Route: 065
     Dates: start: 20160613
  3. ADEMPAS [Suspect]
     Active Substance: RIOCIGUAT
     Indication: PULMONARY HYPERTENSION
     Dosage: 2.5 MG, TID
     Route: 065
     Dates: start: 20151107
  4. STRIBILD [Suspect]
     Active Substance: COBICISTAT\ELVITEGRAVIR\EMTRICITABINE\TENOFOVIR DISOPROXIL FUMARATE
     Indication: PRODUCT USED FOR UNKNOWN INDICATION
     Dosage: UNK
     Route: 065
  5. ADEMPAS [Suspect]
     Active Substance: RIOCIGUAT
     Dosage: TAKING EVERY TWO TO THREE HOURS INSTEAD OF EVERY SIX TO EIGHT HOURS
     Route: 065
  6. UPTRAVI [Suspect]
     Active Substance: SELEXIPAG
     Indication: PULMONARY HYPERTENSION
     Dosage: 2400 UG, BID
     Route: 065
     Dates: end: 20180815
  7. AMBRISENTAN [Suspect]
     Active Substance: AMBRISENTAN
     Indication: PULMONARY HYPERTENSION
     Dosage: 5 MG, QD
     Route: 065
     Dates: start: 20160614
  8. REMODULIN [Suspect]
     Active Substance: TREPROSTINIL
     Indication: PULMONARY ARTERIAL HYPERTENSION
     Dosage: 0.039 UG/KG
     Route: 058
     Dates: start: 20180925
  9. IRON [Concomitant]
     Active Substance: IRON
  10. UPTRAVI [Suspect]
     Active Substance: SELEXIPAG
     Dosage: 2000 UG, BID
     Route: 065
     Dates: start: 20160202, end: 20181009

REACTIONS (7)
  - Diarrhoea [Unknown]
  - Haemoptysis [Unknown]
  - Abdominal discomfort [Unknown]
  - Intentional dose omission [Recovered/Resolved]
  - Cardiac failure [Unknown]
  - Anaemia [Unknown]
  - Wrong product administered [Recovered/Resolved]

NARRATIVE: CASE EVENT DATE: 20180702
